FAERS Safety Report 11058559 (Version 1)
Quarter: 2015Q2

REPORT INFORMATION
  Report Type: Spontaneous
  Country: US (occurrence: None)
  Receive Date: 20150422
  Receipt Date: 20150422
  Transmission Date: 20150821
  Serious: Yes (Disabling, Other)
  Sender: FDA-Public Use
  Company Number: None

PATIENT
  Age: 71 Year
  Sex: Female
  Weight: 90.72 kg

DRUGS (15)
  1. LISINOPRIL. [Concomitant]
     Active Substance: LISINOPRIL
  2. DECADRON/LIDOCAINE [Concomitant]
  3. NABUMETONE. [Concomitant]
     Active Substance: NABUMETONE
  4. RYTHMOL [Concomitant]
     Active Substance: PROPAFENONE HYDROCHLORIDE
  5. FLONASE [Suspect]
     Active Substance: FLUTICASONE PROPIONATE
     Indication: SINUS DISORDER
     Route: 055
     Dates: start: 19910101, end: 20110101
  6. CORTISONE [Suspect]
     Active Substance: CORTISONE\HYDROCORTISONE
     Indication: PRODUCT USED FOR UNKNOWN INDICATION
     Dosage: 6 OCCASIONS
     Dates: start: 20080101, end: 20100101
  7. COUMADIN [Concomitant]
     Active Substance: WARFARIN SODIUM
  8. OMEPRAZOLE. [Concomitant]
     Active Substance: OMEPRAZOLE
  9. VITAMIN D [Concomitant]
     Active Substance: CHOLECALCIFEROL
  10. TRIAMTERENE AND HYDROCHLOROTHIAZIDE [Concomitant]
     Active Substance: HYDROCHLOROTHIAZIDE\TRIAMTERENE
  11. PROLIA [Concomitant]
     Active Substance: DENOSUMAB
  12. COSOPT [Concomitant]
     Active Substance: DORZOLAMIDE HYDROCHLORIDE\TIMOLOL MALEATE
  13. ALENDRONATE [Concomitant]
     Active Substance: ALENDRONATE SODIUM
  14. CLOBETASOL CREAM [Concomitant]
     Active Substance: CLOBETASOL
  15. SYNTHROID [Concomitant]
     Active Substance: LEVOTHYROXINE SODIUM

REACTIONS (1)
  - Blindness [None]

NARRATIVE: CASE EVENT DATE: 20110101
